FAERS Safety Report 6480412-5 (Version None)
Quarter: 2009Q4

REPORT INFORMATION
  Report Type: 
  Country: None (occurrence: None)
  Receive Date: 20091208
  Receipt Date: 20091202
  Transmission Date: 20100525
  Serious: Yes (Life-Threatening)
  Sender: FDA-Public Use
  Company Number: CHPA2009DE22872

PATIENT
  Age: 14 Month
  Sex: Male

DRUGS (2)
  1. PHENYLEPHRINE (NCH) [Suspect]
     Indication: RESPIRATORY TRACT INFECTION
     Dosage: 1 DF, ONCE/SINGLE
     Route: 045
  2. ACETYLCYSTEINE [Concomitant]
     Indication: RESPIRATORY TRACT INFECTION
     Dosage: ONCE
     Route: 048

REACTIONS (2)
  - ANGIOEDEMA [None]
  - DYSPNOEA [None]
